FAERS Safety Report 8947213 (Version 1)
Quarter: 2012Q4

REPORT INFORMATION
  Report Type: 
  Country: US (occurrence: US)
  Receive Date: 20121205
  Receipt Date: 20121205
  Transmission Date: 20130627
  Serious: Yes (Other)
  Sender: FDA-Public Use
  Company Number: US-BAYER-2012-126673

PATIENT

DRUGS (2)
  1. ALKA-SELTZER PLUS COLD [Suspect]
  2. NYQUIL (PSEUDOEPHEDRINE) [Suspect]

REACTIONS (2)
  - Syncope [None]
  - Insomnia [None]
